FAERS Safety Report 18360637 (Version 2)
Quarter: 2020Q4

REPORT INFORMATION
  Report Type: Spontaneous
  Country: PR (occurrence: PR)
  Receive Date: 20201008
  Receipt Date: 20201230
  Transmission Date: 20210114
  Serious: Yes (Other)
  Sender: FDA-Public Use
  Company Number: PR-BAYER-2020-211155

PATIENT
  Sex: Male

DRUGS (1)
  1. NEXAVAR [Suspect]
     Active Substance: SORAFENIB
     Indication: HEPATOCELLULAR CARCINOMA
     Dosage: 400 MG, BID
     Dates: start: 20200827, end: 20201228

REACTIONS (6)
  - Hepatectomy [None]
  - Peripheral swelling [None]
  - Urticaria [None]
  - Gait disturbance [None]
  - Skin discolouration [None]
  - Pain [None]
